FAERS Safety Report 5252040-0 (Version None)
Quarter: 2007Q1

REPORT INFORMATION
  Report Type: 
  Country: None (occurrence: None)
  Receive Date: 20070223
  Receipt Date: 20070216
  Transmission Date: 20070707
  Serious: Yes (Other)
  Sender: FDA-Public Use
  Company Number: 34506

PATIENT

DRUGS (2)
  1. ONDANSETRON [Suspect]
  2. BUMETANIDE [Suspect]

REACTIONS (1)
  - MEDICATION ERROR [None]
